FAERS Safety Report 8106076-2 (Version None)
Quarter: 2012Q1

REPORT INFORMATION
  Report Type: 
  Country: None (occurrence: None)
  Receive Date: 20120202
  Receipt Date: 20120130
  Transmission Date: 20120608
  Serious: No
  Sender: FDA-Public Use
  Company Number: US-PFIZER INC-2012025297

PATIENT
  Sex: Female
  Weight: 79.365 kg

DRUGS (2)
  1. PREMPRO [Suspect]
     Indication: ENDOCRINE DISORDER
     Dosage: 0.3/1.5 MG,1X/DAY
     Route: 048
     Dates: start: 20110301
  2. PREMPRO [Suspect]
     Dosage: 0.45/1.5 MG, 1X/DAY
     Route: 048
     Dates: start: 20110101

REACTIONS (17)
  - SWELLING [None]
  - MENORRHAGIA [None]
  - ANXIETY [None]
  - COLD SWEAT [None]
  - DRUG INEFFECTIVE [None]
  - DIZZINESS [None]
  - FEELING COLD [None]
  - BODY TEMPERATURE DECREASED [None]
  - DRUG DOSE OMISSION [None]
  - DEPRESSION [None]
  - OVARIAN DISORDER [None]
  - HOT FLUSH [None]
  - FEELING ABNORMAL [None]
  - AMENORRHOEA [None]
  - UNEVALUABLE EVENT [None]
  - MOOD ALTERED [None]
  - PREMENSTRUAL SYNDROME [None]
